FAERS Safety Report 16742454 (Version 1)
Quarter: 2019Q3

REPORT INFORMATION
  Report Type: Report from Study
  Country: US (occurrence: US)
  Receive Date: 20190826
  Receipt Date: 20190826
  Transmission Date: 20191005
  Serious: Yes (Hospitalization)
  Sender: FDA-Public Use
  Company Number: US-GILEAD-2019-0425045

PATIENT
  Sex: Male

DRUGS (11)
  1. VENTOLIN [GUAIFENESIN;SALBUTAMOL SULFATE] [Concomitant]
     Active Substance: ALBUTEROL\GUAIFENESIN
  2. VITAMINS NOS [Concomitant]
     Active Substance: VITAMINS
  3. CREON [Concomitant]
     Active Substance: PANCRELIPASE AMYLASE\PANCRELIPASE LIPASE\PANCRELIPASE PROTEASE
  4. POTASSIUM CITRATE. [Concomitant]
     Active Substance: POTASSIUM CITRATE
  5. AZTREONAM LYSINE [Suspect]
     Active Substance: AZTREONAM LYSINE
     Indication: CYSTIC FIBROSIS
     Dosage: 75 MG, TID FOR 28 DAYS EVERY OTHER
     Route: 055
     Dates: start: 201704
  6. TOBRAMYCIN. [Concomitant]
     Active Substance: TOBRAMYCIN
  7. PULMOZYME [Concomitant]
     Active Substance: DORNASE ALFA
  8. ADVAIR HFA [Concomitant]
     Active Substance: FLUTICASONE PROPIONATE\SALMETEROL XINAFOATE
  9. SPIRIVA [Concomitant]
     Active Substance: TIOTROPIUM BROMIDE MONOHYDRATE
  10. PRILOSEC [Concomitant]
     Active Substance: OMEPRAZOLE MAGNESIUM
  11. AZITHROMYCIN ANHYDROUS. [Concomitant]
     Active Substance: AZITHROMYCIN ANHYDROUS

REACTIONS (1)
  - Infection [Unknown]
